FAERS Safety Report 24169389 (Version 1)
Quarter: 2024Q3

REPORT INFORMATION
  Report Type: Spontaneous
  Country: US (occurrence: US)
  Receive Date: 20240802
  Receipt Date: 20240802
  Transmission Date: 20241017
  Serious: Yes (Other)
  Sender: CSL BEHRING
  Company Number: US-BEH-2024176557

PATIENT
  Age: 18 Year
  Sex: Female

DRUGS (2)
  1. HUMATE-P [Suspect]
     Active Substance: HUMAN COAGULATION FACTOR VIII/VON WILLEBRAND FACTOR COMPLEX
     Indication: Von Willebrand^s disease
     Dosage: 2400 RCOF UNITS (2160-2640) , PRN
     Route: 042
     Dates: start: 202406
  2. HUMATE-P [Suspect]
     Active Substance: HUMAN COAGULATION FACTOR VIII/VON WILLEBRAND FACTOR COMPLEX
     Indication: Von Willebrand^s disease
     Dosage: 1200 RCOF UNITS (1080-1320) , PRN
     Route: 042

REACTIONS (2)
  - Haemorrhage [Unknown]
  - Animal bite [Unknown]

NARRATIVE: CASE EVENT DATE: 20240710
